FAERS Safety Report 18387165 (Version 1)
Quarter: 2020Q4

REPORT INFORMATION
  Report Type: Spontaneous
  Country: US (occurrence: US)
  Receive Date: 20201015
  Receipt Date: 20201015
  Transmission Date: 20210114
  Serious: Yes (Death)
  Sender: FDA-Public Use
  Company Number: None

PATIENT
  Age: 65 Year
  Sex: Female
  Weight: 77 kg

DRUGS (14)
  1. NORAPINEPHRINE [Concomitant]
  2. VEKLURY [Suspect]
     Active Substance: REMDESIVIR
     Indication: COVID-19
     Route: 042
     Dates: start: 20200929, end: 20200929
  3. CALCIUM [Concomitant]
     Active Substance: CALCIUM
  4. DEXAMETHASONE. [Concomitant]
     Active Substance: DEXAMETHASONE
  5. CEFEPIME [Concomitant]
     Active Substance: CEFEPIME HYDROCHLORIDE
  6. ENOXAPARIN [Concomitant]
     Active Substance: ENOXAPARIN
  7. PANTOPRAZOLE [Concomitant]
     Active Substance: PANTOPRAZOLE
  8. EXTHARA SERAPH BLOOD FILTER [Concomitant]
  9. PATROLATUM [Concomitant]
  10. CVVH HEMODIALYSIS [Concomitant]
  11. EPINEPHRINE. [Concomitant]
     Active Substance: EPINEPHRINE
  12. HEPARIN [Concomitant]
     Active Substance: HEPARIN SODIUM
  13. BICARB [Concomitant]
     Active Substance: SODIUM BICARBONATE
  14. VASOPRASSIN [Concomitant]

REACTIONS (1)
  - Brain death [None]

NARRATIVE: CASE EVENT DATE: 20201001
